FAERS Safety Report 6943641-X (Version None)
Quarter: 2010Q3

REPORT INFORMATION
  Report Type: 
  Country: None (occurrence: None)
  Receive Date: 20100826
  Receipt Date: 20100813
  Transmission Date: 20110219
  Serious: Yes (Other)
  Sender: FDA-Public Use
  Company Number: PHHY2010US43858

PATIENT
  Sex: Female

DRUGS (11)
  1. RECLAST [Suspect]
     Dosage: UNK
     Route: 042
  2. RECLAST [Suspect]
     Dosage: UNK
     Route: 042
  3. EXELON [Concomitant]
  4. LEVOTHYROXINE SODIUM [Concomitant]
  5. FLECTOR [Concomitant]
  6. ASPIRIN [Concomitant]
  7. FOLIC ACID [Concomitant]
  8. CARDEM [Concomitant]
  9. MELOXICAM [Concomitant]
  10. KLONOPIN [Concomitant]
  11. PREDNISOLONE [Concomitant]

REACTIONS (4)
  - BONE DISORDER [None]
  - MOUTH ULCERATION [None]
  - ORAL TORUS [None]
  - OSTEONECROSIS OF JAW [None]
